FAERS Safety Report 25866189 (Version 1)
Quarter: 2025Q3

REPORT INFORMATION
  Report Type: Spontaneous
  Country: US (occurrence: None)
  Receive Date: 20250930
  Receipt Date: 20250930
  Transmission Date: 20251021
  Serious: Yes (Disabling)
  Sender: FDA-CTU
  Company Number: None

PATIENT
  Age: 59 Year
  Sex: Female
  Weight: 47.475 kg

DRUGS (1)
  1. NEMLUVIO [Suspect]
     Active Substance: NEMOLIZUMAB-ILTO
     Indication: Dermatitis atopic
     Dosage: OTHER FREQUENCY : ONCE A MONTH;?
     Route: 058

REACTIONS (9)
  - Arthritis [None]
  - Arthralgia [None]
  - Vulval disorder [None]
  - Lichen sclerosus [None]
  - Pain [None]
  - Skin fissures [None]
  - Skin adhesion [None]
  - Injury [None]
  - Vulvovaginal burning sensation [None]

NARRATIVE: CASE EVENT DATE: 20250820
